FAERS Safety Report 4863545-6 (Version None)
Quarter: 2005Q4

REPORT INFORMATION
  Report Type: 
  Country: None (occurrence: None)
  Receive Date: 20051222
  Receipt Date: 20050418
  Transmission Date: 20060501
  Serious: No
  Sender: FDA-Public Use
  Company Number: US-GLAXOSMITHKLINE-A0554526A

PATIENT
  Age: 52 Year
  Sex: Male

DRUGS (2)
  1. FLONASE [Suspect]
     Indication: DRUG USE FOR UNKNOWN INDICATION
     Dosage: 2SPR PER DAY
     Route: 045
     Dates: start: 20050501
  2. BECONASE AQ [Concomitant]

REACTIONS (7)
  - APHONIA [None]
  - DRUG INEFFECTIVE [None]
  - DYSPHONIA [None]
  - ILL-DEFINED DISORDER [None]
  - LARYNGITIS [None]
  - NASAL DISCOMFORT [None]
  - THROAT IRRITATION [None]
